FAERS Safety Report 18633233 (Version 1)
Quarter: 2020Q4

REPORT INFORMATION
  Report Type: Spontaneous
  Country: US (occurrence: US)
  Receive Date: 20201218
  Receipt Date: 20201218
  Transmission Date: 20210114
  Serious: No
  Sender: FDA-Public Use
  Company Number: US-REGENERON PHARMACEUTICALS, INC.-2020-10925

PATIENT

DRUGS (2)
  1. EYLEA [Suspect]
     Active Substance: AFLIBERCEPT
     Indication: MACULAR OEDEMA
     Dosage: 2MG, EVERY 5-6 WEEKS, LAST DOSE
     Route: 031
     Dates: start: 201910, end: 201910
  2. EYLEA [Suspect]
     Active Substance: AFLIBERCEPT
     Indication: RETINAL VEIN OCCLUSION
     Dosage: 2MG, EVERY 5-6 WEEKS
     Route: 031
     Dates: start: 201907

REACTIONS (1)
  - Product storage error [Unknown]
